FAERS Safety Report 10862031 (Version 1)
Quarter: 2015Q1

REPORT INFORMATION
  Report Type: Spontaneous
  Country: DE (occurrence: DE)
  Receive Date: 20150224
  Receipt Date: 20150224
  Transmission Date: 20150721
  Serious: Yes (Other)
  Sender: FDA-Public Use
  Company Number: DE-PFIZER INC-2015060210

PATIENT
  Age: 75 Year
  Sex: Female

DRUGS (4)
  1. AMLODIPINE [Concomitant]
     Active Substance: AMLODIPINE BESYLATE
     Dosage: 10 MG, UNK
  2. SANASTHMAX [Concomitant]
     Dosage: 0.4 MG, UNK
  3. L-THYROXIN [Concomitant]
     Active Substance: LEVOTHYROXINE SODIUM
     Dosage: UNK
  4. VFEND [Suspect]
     Active Substance: VORICONAZOLE
     Dosage: 200 MG, 2X/DAY
     Route: 048
     Dates: start: 20141113

REACTIONS (6)
  - Visual impairment [Recovered/Resolved]
  - Decreased appetite [Recovered/Resolved]
  - Loss of consciousness [Recovered/Resolved]
  - Photopsia [Recovered/Resolved]
  - Constipation [Recovered/Resolved]
  - Colour blindness acquired [Recovered/Resolved]

NARRATIVE: CASE EVENT DATE: 20141115
